FAERS Safety Report 22210209 (Version 2)
Quarter: 2023Q2

REPORT INFORMATION
  Report Type: Spontaneous
  Country: IN (occurrence: IN)
  Receive Date: 20230414
  Receipt Date: 20230501
  Transmission Date: 20230722
  Serious: Yes (Death, Other)
  Sender: FDA-Public Use
  Company Number: IN-TOLMAR, INC.-23IN039431

PATIENT
  Age: 66 Year
  Sex: Male

DRUGS (2)
  1. ELIGARD [Suspect]
     Active Substance: LEUPROLIDE ACETATE
     Indication: Prostate cancer
     Dosage: 22.5 MILLIGRAM, Q 3 MONTH
     Dates: start: 202103
  2. UNSPECIFIED INGREDIENT [Concomitant]
     Active Substance: UNSPECIFIED INGREDIENT
     Indication: Product used for unknown indication

REACTIONS (5)
  - Device related infection [Unknown]
  - Prostatic specific antigen increased [Fatal]
  - Diabetes mellitus [Unknown]
  - Rash macular [Unknown]
  - Drug ineffective [Unknown]
